FAERS Safety Report 9846797 (Version 1)
Quarter: 2014Q1

REPORT INFORMATION
  Report Type: Spontaneous
  Country: US (occurrence: US)
  Receive Date: 20140127
  Receipt Date: 20140127
  Transmission Date: 20141002
  Serious: Yes (Other)
  Sender: FDA-Public Use
  Company Number: US-TEVA-458583USA

PATIENT
  Age: 22 Year
  Sex: Female
  Weight: 52.66 kg

DRUGS (1)
  1. PARAGARD 380A [Suspect]
     Indication: CONTRACEPTION
     Route: 015
     Dates: start: 20131009, end: 20140117

REACTIONS (3)
  - Device dislocation [Recovered/Resolved]
  - Menorrhagia [Unknown]
  - Vaginal haemorrhage [Unknown]
